FAERS Safety Report 8652934 (Version 4)
Quarter: 2012Q4

REPORT INFORMATION
  Report Type: 
  Country: US (occurrence: US)
  Receive Date: 20120706
  Receipt Date: 20120927
  Transmission Date: 20130627
  Serious: Yes (Hospitalization, Disabling, Other)
  Sender: FDA-Public Use
  Company Number: US-ACTELION-A-NJ2012-66697

PATIENT
  Age: 48 Year
  Sex: Male

DRUGS (7)
  1. TRACLEER [Suspect]
     Indication: PULMONARY HYPERTENSION
     Dosage: 62.5 mg, bid
     Route: 048
     Dates: start: 20120215, end: 20120410
  2. TRACLEER [Interacting]
     Dosage: 125 mg, bid
     Route: 048
     Dates: start: 20120411, end: 20120531
  3. TRACLEER [Interacting]
     Dosage: 62.5 mg, bid
     Route: 048
     Dates: start: 20120601, end: 20120810
  4. TOPAMAX [Interacting]
  5. CARBAMAZEPINE [Interacting]
  6. COUMADIN [Concomitant]
  7. KEPPRA [Concomitant]

REACTIONS (4)
  - Convulsion [Recovering/Resolving]
  - Drug interaction [Recovering/Resolving]
  - Concomitant disease aggravated [Recovering/Resolving]
  - Hypersensitivity [Unknown]
